FAERS Safety Report 5858392-2 (Version None)
Quarter: 2008Q3

REPORT INFORMATION
  Report Type: 
  Country: None (occurrence: None)
  Receive Date: 20080826
  Receipt Date: 20080820
  Transmission Date: 20090109
  Serious: Yes (Hospitalization)
  Sender: FDA-Public Use
  Company Number: US-PURDUE-USA_2008_0034549

PATIENT
  Age: 52 Year
  Sex: Male

DRUGS (4)
  1. OXYCONTIN [Suspect]
     Indication: ARTHRALGIA
     Dosage: 120 MG, DAILY
     Route: 048
     Dates: start: 20071201, end: 20080724
  2. NEXIUM [Concomitant]
     Indication: ULCER
  3. ALLEGRA [Concomitant]
     Indication: HYPERSENSITIVITY
  4. ROXICODONE [Concomitant]
     Indication: BREAKTHROUGH PAIN

REACTIONS (4)
  - INCISION SITE OEDEMA [None]
  - PAIN [None]
  - STAPHYLOCOCCAL INFECTION [None]
  - WOUND DEHISCENCE [None]
